FAERS Safety Report 15955031 (Version 1)
Quarter: 2019Q1

REPORT INFORMATION
  Report Type: Spontaneous
  Country: US (occurrence: US)
  Receive Date: 20190213
  Receipt Date: 20190213
  Transmission Date: 20190417
  Serious: No
  Sender: FDA-Public Use
  Company Number: US-PFIZER INC-2019062677

PATIENT
  Age: 57 Year
  Sex: Female

DRUGS (4)
  1. LEFLUNOMIDE. [Suspect]
     Active Substance: LEFLUNOMIDE
     Dosage: UNK
  2. HYDROXYCHLOROQUINE [HYDROXYCHLOROQUINE SULFATE] [Suspect]
     Active Substance: HYDROXYCHLOROQUINE SULFATE
     Dosage: UNK
  3. VENLAFAXINE HCL [Suspect]
     Active Substance: VENLAFAXINE HYDROCHLORIDE
     Dosage: UNK
  4. VITAMIN C [Suspect]
     Active Substance: ASCORBIC ACID
     Dosage: UNK

REACTIONS (1)
  - Drug hypersensitivity [Unknown]
